FAERS Safety Report 9928129 (Version 1)
Quarter: 2014Q1

REPORT INFORMATION
  Report Type: Spontaneous
  Country: US (occurrence: None)
  Receive Date: 20140226
  Receipt Date: 20140226
  Transmission Date: 20141002
  Serious: Yes (Hospitalization, Disabling)
  Sender: FDA-Public Use
  Company Number: None

PATIENT
  Age: 67 Year
  Sex: Male
  Weight: 83.01 kg

DRUGS (1)
  1. ANDROGEL [Suspect]
     Indication: BLOOD TESTOSTERONE NORMAL
     Dosage: 1.62?ONCE DAILY?APPLIED TO A SURFACE USUALLY THE SKIN
     Dates: start: 20120515, end: 20130410

REACTIONS (4)
  - Electrocardiogram abnormal [None]
  - Atrial fibrillation [None]
  - Ventricular extrasystoles [None]
  - Bundle branch block right [None]
